FAERS Safety Report 12495488 (Version 1)
Quarter: 2016Q2

REPORT INFORMATION
  Report Type: Spontaneous
  Country: CN (occurrence: CN)
  Receive Date: 20160624
  Receipt Date: 20160624
  Transmission Date: 20160815
  Serious: Yes (Other)
  Sender: FDA-Public Use
  Company Number: CN-FRESENIUS KABI-FK201603823

PATIENT

DRUGS (4)
  1. CYTARABINE (MANUFACTURER UNKNOWN) [Suspect]
     Active Substance: CYTARABINE
     Indication: ACUTE LYMPHOCYTIC LEUKAEMIA
     Route: 042
  2. SEMUSTINE [Suspect]
     Active Substance: SEMUSTINE
     Indication: ACUTE LYMPHOCYTIC LEUKAEMIA
     Route: 048
  3. CYCLOPHOSPHAMIDE (MANUFACTURER UNKNOWN) [Suspect]
     Active Substance: CYCLOPHOSPHAMIDE
     Indication: ACUTE LYMPHOCYTIC LEUKAEMIA
     Route: 042
  4. HYDROXYUREA (MANUFACTURER UNKNOWN) [Suspect]
     Active Substance: HYDROXYUREA
     Indication: ACUTE LYMPHOCYTIC LEUKAEMIA
     Route: 048

REACTIONS (1)
  - Venoocclusive liver disease [Recovered/Resolved]
